FAERS Safety Report 4535785-7 (Version None)
Quarter: 2004Q4

REPORT INFORMATION
  Report Type: 
  Country: None (occurrence: None)
  Receive Date: 20041223
  Receipt Date: 20040310
  Transmission Date: 20050328
  Serious: No
  Sender: FDA-Public Use
  Company Number: US-GLAXOSMITHKLINE-A0502153A

PATIENT
  Age: 68 Year
  Sex: Female

DRUGS (2)
  1. FLONASE [Suspect]
     Indication: ILL-DEFINED DISORDER
     Route: 045
  2. ALBUTEROL [Concomitant]

REACTIONS (2)
  - AGEUSIA [None]
  - ANOSMIA [None]
